FAERS Safety Report 18278499 (Version 1)
Quarter: 2020Q3

REPORT INFORMATION
  Report Type: Spontaneous
  Country: CN (occurrence: CN)
  Receive Date: 20200917
  Receipt Date: 20200917
  Transmission Date: 20201103
  Serious: Yes (Other)
  Sender: FDA-Public Use
  Company Number: CN-ASTRAZENECA-2020SF17676

PATIENT
  Age: 70 Year
  Sex: Male

DRUGS (5)
  1. OSIMERTINIB. [Suspect]
     Active Substance: OSIMERTINIB
     Indication: LUNG ADENOCARCINOMA STAGE IV
     Route: 048
  2. DABRAFENIB [Suspect]
     Active Substance: DABRAFENIB
     Indication: LUNG ADENOCARCINOMA STAGE IV
     Dates: start: 201809
  3. OSIMERTINIB. [Suspect]
     Active Substance: OSIMERTINIB
     Indication: LUNG ADENOCARCINOMA STAGE IV
     Route: 048
     Dates: start: 201907
  4. GEFITINIB. [Suspect]
     Active Substance: GEFITINIB
     Indication: LUNG ADENOCARCINOMA STAGE IV
     Route: 048
     Dates: start: 201604
  5. TRAMETINIB [Suspect]
     Active Substance: TRAMETINIB
     Indication: LUNG ADENOCARCINOMA STAGE IV
     Dates: start: 201809

REACTIONS (9)
  - Malignant neoplasm progression [Recovering/Resolving]
  - Metastases to lymph nodes [Unknown]
  - Acquired gene mutation [Unknown]
  - Metastases to bone [Unknown]
  - Pyrexia [Unknown]
  - Paronychia [Unknown]
  - BRAF gene mutation [Unknown]
  - EGFR gene mutation [Unknown]
  - Drug resistance [Unknown]
